FAERS Safety Report 8902610 (Version 3)
Quarter: 2013Q1

REPORT INFORMATION
  Report Type: Spontaneous
  Country: US (occurrence: US)
  Receive Date: 20121112
  Receipt Date: 20130204
  Transmission Date: 20140127
  Serious: Yes (Hospitalization, Other)
  Sender: FDA-Public Use
  Company Number: PHEH2012US022042

PATIENT
  Sex: Female

DRUGS (12)
  1. CLOZARIL [Suspect]
     Indication: HALLUCINATION, AUDITORY
     Dosage: UNK
     Route: 048
     Dates: end: 201204
  2. TOPIRAMATE [Suspect]
     Dosage: UNK
  3. COGENTIN [Suspect]
     Dosage: UNK
  4. SAPHRIS [Suspect]
     Dosage: UNK
  5. KLONOPIN [Suspect]
     Dosage: UNK
  6. DEPAKOTE [Suspect]
     Dosage: UNK
  7. ABILIFY [Suspect]
     Dosage: UNK
  8. RISPERDAL [Suspect]
     Dosage: UNK
  9. PROZAC [Suspect]
     Dosage: UNK
  10. LATUDA [Suspect]
     Dosage: UNK
  11. CLOZAPINE [Suspect]
     Indication: HALLUCINATION, AUDITORY
     Dosage: 50 MG, 50 MG AND 700
     Route: 048
     Dates: start: 201204
  12. HALDOL [Suspect]
     Dosage: UNK

REACTIONS (4)
  - Intentional self-injury [Unknown]
  - Hallucination, auditory [Not Recovered/Not Resolved]
  - Therapeutic response decreased [Unknown]
  - Weight increased [Unknown]
